FAERS Safety Report 5009684-0 (Version None)
Quarter: 2006Q2

REPORT INFORMATION
  Report Type: 
  Country: None (occurrence: None)
  Receive Date: 20060522
  Receipt Date: 20060504
  Transmission Date: 20061013
  Serious: Yes (Life-Threatening)
  Sender: FDA-Public Use
  Company Number: 223656

PATIENT
  Age: 47 Year
  Sex: Male
  Weight: 63 kg

DRUGS (4)
  1. AVASTIN [Suspect]
     Indication: COLORECTAL CANCER
     Dosage: 5 MG/KG, INTRAVENOUS
     Dates: start: 20051221
  2. FLUOROURACIL [Concomitant]
  3. LEUCOVORIN CALCIUM [Concomitant]
  4. IRINOTECAN HCL [Concomitant]

REACTIONS (4)
  - COLITIS ISCHAEMIC [None]
  - GASTROINTESTINAL EROSION [None]
  - GASTROINTESTINAL PERFORATION [None]
  - PERITONITIS [None]
